FAERS Safety Report 8129478-7 (Version None)
Quarter: 2011Q4

REPORT INFORMATION
  Report Type: 
  Country: None (occurrence: None)
  Receive Date: 20111227
  Receipt Date: 20110830
  Transmission Date: 20120403
  Serious: No
  Sender: FDA-Public Use
  Company Number: PHEH2011US03178

PATIENT
  Age: 19 Year
  Sex: Female
  Weight: 59 kg

DRUGS (1)
  1. GILENYA [Suspect]
     Dosage: 0.5 MG, QD, ORAL
     Route: 048
     Dates: start: 20110830, end: 20110830

REACTIONS (3)
  - DIZZINESS [None]
  - HEART RATE INCREASED [None]
  - CHEST DISCOMFORT [None]
